FAERS Safety Report 6874890-7 (Version None)
Quarter: 2010Q3

REPORT INFORMATION
  Report Type: 
  Country: None (occurrence: None)
  Receive Date: 20100723
  Receipt Date: 20100708
  Transmission Date: 20110219
  Serious: Yes (Hospitalization, Disabling, Other)
  Sender: FDA-Public Use
  Company Number: A-CH2010-37323

PATIENT
  Age: 23 Month
  Sex: Male
  Weight: 11.9 kg

DRUGS (3)
  1. ZAVESCA [Suspect]
     Indication: NIEMANN-PICK DISEASE
     Dosage: 50 MG, BID, ORAL; 25 MG, OD, ORAL; 50 MG, OD, ORAL
     Route: 048
     Dates: start: 20100602, end: 20100612
  2. ZAVESCA [Suspect]
     Indication: NIEMANN-PICK DISEASE
     Dosage: 50 MG, BID, ORAL; 25 MG, OD, ORAL; 50 MG, OD, ORAL
     Route: 048
     Dates: start: 20100622
  3. ASPIRIN [Concomitant]

REACTIONS (7)
  - ATAXIA [None]
  - DECREASED ACTIVITY [None]
  - DISEASE PROGRESSION [None]
  - EPILEPSY [None]
  - HYPOTONIA [None]
  - NIEMANN-PICK DISEASE [None]
  - TREMOR [None]
